FAERS Safety Report 16990278 (Version 1)
Quarter: 2019Q4

REPORT INFORMATION
  Report Type: Spontaneous
  Country: US (occurrence: US)
  Receive Date: 20191102
  Receipt Date: 20191102
  Transmission Date: 20200122
  Serious: Yes (Life-Threatening)
  Sender: FDA-Public Use
  Company Number: None

PATIENT
  Age: 32 Year
  Sex: Female
  Weight: 57.3 kg

DRUGS (1)
  1. METHIMAZOLE. [Suspect]
     Active Substance: METHIMAZOLE
     Indication: BASEDOW^S DISEASE
     Route: 051
     Dates: start: 20191001, end: 20191101

REACTIONS (5)
  - Neutrophil count decreased [None]
  - Candida infection [None]
  - Pyrexia [None]
  - White blood cell count decreased [None]
  - Agranulocytosis [None]

NARRATIVE: CASE EVENT DATE: 20191101
